FAERS Safety Report 11412474 (Version 1)
Quarter: 2015Q3

REPORT INFORMATION
  Report Type: Spontaneous
  Country: US (occurrence: US)
  Receive Date: 20150824
  Receipt Date: 20150824
  Transmission Date: 20151125
  Serious: No
  Sender: FDA-Public Use
  Company Number: US-JNJFOC-20150714293

PATIENT
  Sex: Female

DRUGS (2)
  1. ROGAINE 5% [Suspect]
     Active Substance: MINOXIDIL
     Indication: PRODUCT USED FOR UNKNOWN INDICATION
     Route: 065
  2. ROGAINE 5% [Suspect]
     Active Substance: MINOXIDIL
     Route: 065

REACTIONS (1)
  - Wrong technique in product usage process [Unknown]
